FAERS Safety Report 12348147 (Version 1)
Quarter: 2016Q2

REPORT INFORMATION
  Report Type: Spontaneous
  Country: SE (occurrence: SE)
  Receive Date: 20160509
  Receipt Date: 20160509
  Transmission Date: 20160815
  Serious: Yes (Life-Threatening)
  Sender: FDA-Public Use
  Company Number: SE-MYLANLABS-2016M1018347

PATIENT

DRUGS (1)
  1. AZATHIOPRINE MYLAN [Suspect]
     Active Substance: AZATHIOPRINE
     Indication: CROHN^S DISEASE
     Dosage: UNK

REACTIONS (2)
  - Cardiac failure [Unknown]
  - Hypersensitivity [Unknown]
